FAERS Safety Report 4478740-8 (Version None)
Quarter: 2004Q4

REPORT INFORMATION
  Report Type: 
  Country: None (occurrence: None)
  Receive Date: 20040923
  Receipt Date: 20040621
  Transmission Date: 20050328
  Serious: No
  Sender: FDA-Public Use
  Company Number: USA040465980

PATIENT
  Age: 75 Year
  Sex: Female
  Weight: 83 kg

DRUGS (5)
  1. FORTEO [Suspect]
     Indication: OSTEOPOROSIS
     Dosage: 20 UG DAY
     Dates: start: 20040423, end: 20040604
  2. EVISTA [Suspect]
     Indication: OSTEOPENIA
     Dosage: 60 MG/L DAY
     Dates: start: 20030424, end: 20040423
  3. LASIX [Concomitant]
  4. ACECOL (TEMOCAPRIL HYDROCLORIDE) [Concomitant]
  5. CARAFATE [Concomitant]

REACTIONS (22)
  - ABDOMINAL HERNIA [None]
  - ANXIETY [None]
  - ARTHRALGIA [None]
  - BACK PAIN [None]
  - BONE DENSITY DECREASED [None]
  - CONTUSION [None]
  - DIZZINESS [None]
  - DRY SKIN [None]
  - DYSPEPSIA [None]
  - FATIGUE [None]
  - FEELING ABNORMAL [None]
  - FLATULENCE [None]
  - GASTROINTESTINAL DISORDER [None]
  - HEADACHE [None]
  - INJECTION SITE HAEMORRHAGE [None]
  - INTERVERTEBRAL DISC DEGENERATION [None]
  - MUSCULAR WEAKNESS [None]
  - NASOPHARYNGITIS [None]
  - NECK PAIN [None]
  - ONYCHORRHEXIS [None]
  - STOMACH DISCOMFORT [None]
  - TINNITUS [None]
